FAERS Safety Report 6585806-5 (Version None)
Quarter: 2010Q1

REPORT INFORMATION
  Report Type: 
  Country: None (occurrence: None)
  Receive Date: 20100217
  Receipt Date: 20100208
  Transmission Date: 20100710
  Serious: Yes (Death)
  Sender: FDA-Public Use
  Company Number: JP-PFIZER INC-2010007145

PATIENT
  Age: 79 Year
  Sex: Female
  Weight: 58 kg

DRUGS (2)
  1. CELECOX [Suspect]
     Indication: RHEUMATOID ARTHRITIS
     Dosage: 200 MG, UNKNOWN/DAY
     Route: 048
     Dates: start: 20080715, end: 20081222
  2. DICLOFENAC SODIUM [Concomitant]
     Dosage: UNK
     Route: 054
     Dates: start: 20080715

REACTIONS (1)
  - DEATH [None]
